FAERS Safety Report 12952735 (Version 2)
Quarter: 2018Q2

REPORT INFORMATION
  Report Type: Spontaneous
  Country: US (occurrence: US)
  Receive Date: 20161117
  Receipt Date: 20180515
  Transmission Date: 20180711
  Serious: No
  Sender: FDA-Public Use
  Company Number: US-SA-2016SA167051

PATIENT
  Sex: Male

DRUGS (2)
  1. TOUJEO [Suspect]
     Active Substance: INSULIN GLARGINE
     Indication: TYPE 2 DIABETES MELLITUS
     Dosage: 50-60 U
     Route: 065
     Dates: start: 201602
  2. SOLOSTAR [Concomitant]
     Active Substance: DEVICE
     Dates: start: 201602

REACTIONS (1)
  - Renal disorder [Unknown]
